FAERS Safety Report 9777652 (Version 2)
Quarter: 2014Q1

REPORT INFORMATION
  Report Type: Spontaneous
  Country: AR (occurrence: AR)
  Receive Date: 20131223
  Receipt Date: 20140228
  Transmission Date: 20141002
  Serious: Yes (Hospitalization)
  Sender: FDA-Public Use
  Company Number: AR-AMGEN-ARGSP2013089786

PATIENT
  Age: 65 Year
  Sex: Male

DRUGS (6)
  1. ENBREL [Suspect]
     Indication: RHEUMATOID ARTHRITIS
     Dosage: 50 MG, WEEKLY
     Route: 065
     Dates: start: 20130502
  2. BISOPROLOL [Concomitant]
     Dosage: 10 MG, 1X/DAY
  3. ENALAPRIL MALEATE [Concomitant]
     Dosage: 20 MG, 1X/DAY
  4. ASPIRINETAS [Concomitant]
     Dosage: UNK UNK, QD
  5. CLOPIDOGREL [Concomitant]
     Dosage: 75 MBQ, 1X/DAY
  6. DICLOFENAC [Concomitant]
     Indication: PAIN
     Dosage: UNK UNK, AS NECESSARY

REACTIONS (1)
  - Cardiac arrest [Recovered/Resolved]
